FAERS Safety Report 25377754 (Version 1)
Quarter: 2025Q2

REPORT INFORMATION
  Report Type: Spontaneous
  Country: US (occurrence: US)
  Receive Date: 20250530
  Receipt Date: 20250530
  Transmission Date: 20250717
  Serious: No
  Sender: ROCHE
  Company Number: US-ROCHE-10000295542

PATIENT
  Sex: Male

DRUGS (1)
  1. ERIVEDGE [Suspect]
     Active Substance: VISMODEGIB
     Indication: Basal cell carcinoma
     Dosage: TWICE WEEKLY
     Route: 048
     Dates: start: 202410

REACTIONS (3)
  - Taste disorder [Unknown]
  - Lacrimation increased [Unknown]
  - Rhinorrhoea [Unknown]
